FAERS Safety Report 4909240-6 (Version None)
Quarter: 2006Q1

REPORT INFORMATION
  Report Type: 
  Country: None (occurrence: None)
  Receive Date: 20060210
  Receipt Date: 20060210
  Transmission Date: 20060701
  Serious: Yes (Other)
  Sender: FDA-Public Use
  Company Number: None

PATIENT
  Sex: Male
  Weight: 41.1 kg

DRUGS (1)
  1. STRATTERA [Suspect]
     Indication: ATTENTION DEFICIT/HYPERACTIVITY DISORDER
     Dosage: QD
     Dates: start: 20030101

REACTIONS (3)
  - BLOOD PRESSURE ABNORMAL [None]
  - HEART RATE INCREASED [None]
  - VENTRICULAR EXTRASYSTOLES [None]
